FAERS Safety Report 8354349-0 (Version None)
Quarter: 2012Q2

REPORT INFORMATION
  Report Type: 
  Country: None (occurrence: None)
  Receive Date: 20120511
  Receipt Date: 20120426
  Transmission Date: 20120825
  Serious: Yes (Hospitalization)
  Sender: FDA-Public Use
  Company Number: US-ROCHE-1062732

PATIENT
  Sex: Female

DRUGS (27)
  1. VEMURAFENIB [Suspect]
     Route: 048
     Dates: start: 20120430
  2. NORTRIPTYLINE HCL [Concomitant]
     Dosage: AT BEDTIME
     Route: 048
     Dates: start: 20120110, end: 20120322
  3. DILAUDID [Concomitant]
     Route: 048
     Dates: start: 20120331, end: 20120410
  4. LYRICA [Concomitant]
     Route: 048
     Dates: start: 20120327, end: 20120412
  5. TRAMADOL HYDROCHLORIDE [Suspect]
     Indication: HEADACHE
     Route: 048
     Dates: start: 20120306, end: 20120326
  6. AMLODIPINE BESYLATE [Concomitant]
     Indication: HYPERTENSION
     Route: 048
     Dates: start: 20100101
  7. TEGRETOL [Concomitant]
     Route: 048
     Dates: start: 20120323, end: 20120325
  8. FLEXERIL [Concomitant]
     Indication: ARTHRALGIA
     Route: 048
     Dates: start: 20110101
  9. TRAMADOL HCL [Suspect]
     Dosage: ER
     Route: 048
     Dates: start: 20120424
  10. TAPENTADOL [Suspect]
     Route: 048
     Dates: start: 20120413
  11. ALPRAZOLAM [Concomitant]
     Indication: ANXIETY
     Dosage: AT BEDTIME
     Route: 048
     Dates: start: 20070101
  12. CALCIUM [Concomitant]
     Indication: HYPOCALCAEMIA
     Route: 048
  13. SENOKOT [Concomitant]
     Indication: CONSTIPATION
     Route: 048
     Dates: start: 20120327, end: 20120416
  14. GABAPENTIN [Suspect]
     Indication: HEADACHE
     Route: 048
     Dates: start: 20120422
  15. VITAMIN D [Concomitant]
     Indication: HYPOCALCAEMIA
     Route: 048
     Dates: start: 20120301
  16. DILAUDID [Concomitant]
     Route: 048
     Dates: start: 20120327, end: 20120330
  17. TRAMADOL HCL [Suspect]
     Dosage: ER
     Route: 048
     Dates: start: 20120328, end: 20120423
  18. LEVOTHYROXINE SODIUM [Concomitant]
     Indication: HYPOTHYROIDISM
     Route: 048
     Dates: start: 20080101
  19. TAPENTADOL [Suspect]
     Indication: HEADACHE
     Route: 048
     Dates: start: 20120410, end: 20120412
  20. OMEPRAZOLE [Concomitant]
     Indication: GASTROOESOPHAGEAL REFLUX DISEASE
     Dosage: AT BEDTIME
     Route: 048
     Dates: start: 20120326
  21. VEMURAFENIB [Suspect]
     Indication: THYROID CANCER
     Dosage: DRUG INTERRUPTED
     Route: 048
     Dates: start: 20120326, end: 20120424
  22. CITALOPRAM HYDROBROMIDE [Concomitant]
     Indication: DEPRESSION
     Route: 048
     Dates: start: 20090101
  23. RITALIN [Concomitant]
     Dates: start: 20120330, end: 20120412
  24. DILAUDID [Concomitant]
     Indication: HEADACHE
     Route: 048
     Dates: start: 20120313, end: 20120326
  25. MULTI-VITAMIN [Concomitant]
     Dates: start: 20120327
  26. NYSTATIN/TRIAMCINOLONE [Concomitant]
     Route: 058
     Dates: start: 20120101
  27. GLYCERIN SUPPOSITORY [Concomitant]
     Route: 054
     Dates: start: 20100101

REACTIONS (4)
  - VOMITING [None]
  - ACTINIC KERATOSIS [None]
  - NAUSEA [None]
  - DEHYDRATION [None]
